FAERS Safety Report 6649762-3 (Version None)
Quarter: 2010Q1

REPORT INFORMATION
  Report Type: 
  Country: None (occurrence: None)
  Receive Date: 20100324
  Receipt Date: 20100324
  Transmission Date: 20100710
  Serious: Yes (Life-Threatening, Hospitalization)
  Sender: FDA-Public Use
  Company Number: None

PATIENT
  Age: 23 Year
  Sex: Female
  Weight: 89.8122 kg

DRUGS (1)
  1. ORTHO EVRA [Suspect]
     Indication: CONTRACEPTION
     Dosage: 1 PATCH ONCE A WEEK TRANSDERMAL
     Route: 062
     Dates: start: 20090301, end: 20090418

REACTIONS (3)
  - EMOTIONAL DISORDER [None]
  - IMPAIRED WORK ABILITY [None]
  - THROMBOSIS [None]
